FAERS Safety Report 5388082-4 (Version None)
Quarter: 2007Q3

REPORT INFORMATION
  Report Type: 
  Country: None (occurrence: None)
  Receive Date: 20070716
  Receipt Date: 20061106
  Transmission Date: 20080115
  Serious: No
  Sender: FDA-Public Use
  Company Number: A0626135A

PATIENT
  Age: 54 Year
  Sex: Female

DRUGS (2)
  1. NICORETTE [Suspect]
     Dates: start: 20061023, end: 20061023
  2. EQUATE NTS 14MG [Suspect]
     Dates: start: 20061027

REACTIONS (7)
  - DYSPNOEA [None]
  - HEADACHE [None]
  - INSOMNIA [None]
  - INTENTIONAL DRUG MISUSE [None]
  - NAUSEA [None]
  - NIGHTMARE [None]
  - THROAT TIGHTNESS [None]
